FAERS Safety Report 8798743 (Version 9)
Quarter: 2013Q3

REPORT INFORMATION
  Report Type: Report from Study
  Country: CA (occurrence: CA)
  Receive Date: 20120920
  Receipt Date: 20130921
  Transmission Date: 20140515
  Serious: Yes (Death, Hospitalization, Other)
  Sender: FDA-Public Use
  Company Number: CA-ROCHE-1125487

PATIENT
  Age: 48 Year
  Sex: Female
  Weight: 56 kg

DRUGS (14)
  1. AVASTIN [Suspect]
     Indication: LUNG NEOPLASM MALIGNANT
     Route: 042
     Dates: start: 20090121, end: 20130703
  2. AVASTIN [Suspect]
     Indication: GASTROINTESTINAL CARCINOMA
     Route: 042
     Dates: start: 20110511
  3. AVASTIN [Suspect]
     Route: 042
     Dates: start: 20110601
  4. AVASTIN [Suspect]
     Route: 042
     Dates: start: 20120425
  5. AVASTIN [Suspect]
     Route: 042
     Dates: start: 20130612, end: 20130703
  6. TARCEVA [Suspect]
     Indication: LUNG NEOPLASM MALIGNANT
     Dosage: FREQUENCY: DAILY
     Route: 048
  7. ERBITUX [Suspect]
     Indication: LUNG NEOPLASM MALIGNANT
     Route: 065
     Dates: start: 2013, end: 2013
  8. ERBITUX [Suspect]
     Indication: GASTROINTESTINAL CARCINOMA
  9. CARBOPLATIN [Concomitant]
  10. PEMETREXED [Concomitant]
  11. DOCETAXEL [Concomitant]
  12. CRIZOTINIB [Concomitant]
  13. CISPLATIN [Concomitant]
  14. GEMCITABINE [Concomitant]

REACTIONS (10)
  - Disease progression [Fatal]
  - Febrile neutropenia [Recovered/Resolved]
  - Cough [Recovered/Resolved]
  - Vision blurred [Recovered/Resolved]
  - Metastasis [Unknown]
  - Drug intolerance [Unknown]
  - Muscle twitching [Recovered/Resolved]
  - Flushing [Recovered/Resolved]
  - Feeling hot [Recovered/Resolved]
  - Blood test abnormal [Unknown]
